FAERS Safety Report 13263513 (Version 3)
Quarter: 2017Q2

REPORT INFORMATION
  Report Type: Report from Study
  Country: ZA (occurrence: ZA)
  Receive Date: 20170223
  Receipt Date: 20170420
  Transmission Date: 20170830
  Serious: Yes (Hospitalization, Other)
  Sender: FDA-Public Use
  Company Number: PHHY2017ZA025007

PATIENT
  Age: 48 Year
  Sex: Female
  Weight: 94.2 kg

DRUGS (2)
  1. TRAMETINIB [Suspect]
     Active Substance: TRAMETINIB
     Indication: METASTATIC MALIGNANT MELANOMA
     Dosage: 2 MG, QD
     Route: 048
     Dates: start: 20151125, end: 20170209
  2. DABRAFENIB [Suspect]
     Active Substance: DABRAFENIB
     Indication: METASTATIC MALIGNANT MELANOMA
     Dosage: 150 MG, BID
     Route: 048
     Dates: start: 20151125, end: 20170209

REACTIONS (11)
  - Blood chloride increased [Recovering/Resolving]
  - Immunoglobulins decreased [Recovering/Resolving]
  - Demyelinating polyneuropathy [Recovering/Resolving]
  - Paraesthesia oral [Recovering/Resolving]
  - Hypoaesthesia [Recovering/Resolving]
  - CSF protein increased [Recovering/Resolving]
  - C-reactive protein increased [Recovering/Resolving]
  - Hepatic enzyme increased [Recovering/Resolving]
  - Intervertebral disc protrusion [Recovering/Resolving]
  - Blood creatinine increased [Recovering/Resolving]
  - Myelopathy [Recovering/Resolving]

NARRATIVE: CASE EVENT DATE: 20170208
